FAERS Safety Report 15901172 (Version 2)
Quarter: 2019Q1

REPORT INFORMATION
  Report Type: Report from Study
  Country: DK (occurrence: DK)
  Receive Date: 20190201
  Receipt Date: 20190228
  Transmission Date: 20190417
  Serious: Yes (Hospitalization)
  Sender: FDA-Public Use
  Company Number: PHHO2019DK001293

PATIENT
  Age: 2 Year
  Sex: Female
  Weight: 15 kg

DRUGS (2)
  1. DABRAFENIB [Suspect]
     Active Substance: DABRAFENIB
     Indication: GLIOMA
     Dosage: 40 MG, BID
     Route: 048
     Dates: start: 20181227
  2. TRAMETINIB [Suspect]
     Active Substance: TRAMETINIB
     Dosage: 1 MG, QD
     Route: 048
     Dates: start: 20181227

REACTIONS (1)
  - Epistaxis [Recovered/Resolved]

NARRATIVE: CASE EVENT DATE: 20190125
